FAERS Safety Report 18763691 (Version 7)
Quarter: 2021Q2

REPORT INFORMATION
  Report Type: Report from Study
  Country: BR (occurrence: BR)
  Receive Date: 20210120
  Receipt Date: 20210412
  Transmission Date: 20210717
  Serious: Yes (Life-Threatening, Hospitalization, Other)
  Sender: FDA-Public Use
  Company Number: NVSC2021BR011741

PATIENT
  Age: 54 Year
  Sex: Female
  Weight: 73 kg

DRUGS (8)
  1. PIQRAY [Suspect]
     Active Substance: ALPELISIB
     Indication: BREAST CANCER
     Dosage: 300 MG (1 TABLET 200 MG + 2 TABLETS 50 MG)
     Route: 048
     Dates: start: 20201224, end: 20210111
  2. FULVESTRANT. [Concomitant]
     Active Substance: FULVESTRANT
     Indication: PRODUCT USED FOR UNKNOWN INDICATION
     Dosage: UNK  (SYRINGE, EVERY 28 DAYS)
     Route: 065
     Dates: start: 2016
  3. FASLODEX [Concomitant]
     Active Substance: FULVESTRANT
     Indication: BREAST CANCER METASTATIC
     Dosage: UNK, QMO (EVERY 28 DAYS)
     Route: 058
     Dates: start: 2016
  4. FASLODEX [Concomitant]
     Active Substance: FULVESTRANT
     Dosage: UNK (SYRINGE)
     Route: 065
     Dates: start: 202005
  5. PIQRAY [Suspect]
     Active Substance: ALPELISIB
     Dosage: 250 MG (24 MAR YEAR NOT REPORTED)
     Route: 065
  6. PIQRAY [Suspect]
     Active Substance: ALPELISIB
     Indication: BREAST CANCER METASTATIC
     Dosage: 250 MG (1 TABLET 200 MG + 1 TABLET 50 MG)
     Route: 048
     Dates: start: 20210111
  7. PIQRAY [Suspect]
     Active Substance: ALPELISIB
     Dosage: 300 MG
     Route: 065
  8. ZOMETA [Concomitant]
     Active Substance: ZOLEDRONIC ACID
     Indication: METASTASES TO BONE
     Dosage: UNK (SYRINGE, EVERY 56 DAYS)
     Route: 065
     Dates: start: 2016

REACTIONS (17)
  - Fatigue [Unknown]
  - Blood glucose abnormal [Recovered/Resolved]
  - Illness [Unknown]
  - Alopecia [Recovered/Resolved with Sequelae]
  - Fatigue [Recovered/Resolved with Sequelae]
  - Bone lesion [Unknown]
  - Drug ineffective [Unknown]
  - Hyperglycaemia [Recovering/Resolving]
  - Loss of personal independence in daily activities [Unknown]
  - Hepatic lesion [Unknown]
  - Pleural effusion [Unknown]
  - Body mass index increased [Unknown]
  - Drug hypersensitivity [Unknown]
  - Blood glucose increased [Recovered/Resolved]
  - Blood sodium decreased [Recovered/Resolved with Sequelae]
  - Lymphadenopathy [Unknown]
  - Visual impairment [Recovered/Resolved with Sequelae]

NARRATIVE: CASE EVENT DATE: 20201231
